FAERS Safety Report 8112365-8 (Version None)
Quarter: 2012Q1

REPORT INFORMATION
  Report Type: 
  Country: None (occurrence: None)
  Receive Date: 20120203
  Receipt Date: 20120131
  Transmission Date: 20120608
  Serious: No
  Sender: FDA-Public Use
  Company Number: US-PFIZER INC-2012026820

PATIENT
  Sex: Female
  Weight: 74.83 kg

DRUGS (2)
  1. LYRICA [Suspect]
     Indication: FIBROMYALGIA
     Dosage: 150 MG, 2X/DAY
     Route: 048
     Dates: start: 20111001
  2. LYRICA [Suspect]
     Dosage: UNK, 1X/DAY

REACTIONS (3)
  - MUSCULOSKELETAL PAIN [None]
  - THERAPEUTIC RESPONSE UNEXPECTED [None]
  - NIGHT SWEATS [None]
